FAERS Safety Report 7205840-1 (Version None)
Quarter: 2010Q4

REPORT INFORMATION
  Report Type: 
  Country: None (occurrence: None)
  Receive Date: 20101231
  Receipt Date: 20101229
  Transmission Date: 20110411
  Serious: Yes (Other)
  Sender: FDA-Public Use
  Company Number: US-PFIZER INC-2010181556

PATIENT
  Sex: Male
  Weight: 90.703 kg

DRUGS (8)
  1. TOVIAZ [Suspect]
     Indication: HYPERTONIC BLADDER
     Dosage: 4 MG, DAILY
     Route: 048
     Dates: start: 20101201, end: 20101221
  2. DRAMAMINE [Concomitant]
     Indication: HYPERSENSITIVITY
     Dosage: 25 MG, AS NEEDED
  3. TOPROL-XL [Concomitant]
     Indication: HYPERTENSION
     Dosage: UNK
  4. HYDROCHLOROTHIAZIDE [Concomitant]
     Dosage: 25 MG, UNK
  5. METFORMIN [Concomitant]
     Dosage: 500 MG, UNK
  6. ACETYLSALICYLIC ACID [Concomitant]
     Dosage: 325 MG, UNK
  7. NEXIUM [Concomitant]
     Dosage: 20 MG, UNK
  8. METOPROLOL [Concomitant]
     Dosage: 50 MG, UNK

REACTIONS (3)
  - CONSTIPATION [None]
  - DEAFNESS [None]
  - PROSTATECTOMY [None]
